FAERS Safety Report 23829133 (Version 2)
Quarter: 2024Q3

REPORT INFORMATION
  Report Type: Report from Study
  Country: DE (occurrence: DE)
  Receive Date: 20240508
  Receipt Date: 20240801
  Transmission Date: 20241017
  Serious: No
  Sender: ROCHE
  Company Number: DE-ROCHE-3555278

PATIENT
  Age: 53 Year
  Sex: Female
  Weight: 55.0 kg

DRUGS (27)
  1. OCREVUS [Suspect]
     Active Substance: OCRELIZUMAB
     Indication: Relapsing multiple sclerosis
     Route: 042
     Dates: start: 20181204, end: 20190104
  2. OCREVUS [Suspect]
     Active Substance: OCRELIZUMAB
     Indication: Multiple sclerosis
     Route: 042
     Dates: start: 20190704
  3. ACETAMINOPHEN [Concomitant]
     Active Substance: ACETAMINOPHEN
     Indication: Body temperature increased
     Dosage: DEFINITION OF THE INTERVAL: AS REQUIRED
     Route: 048
     Dates: start: 20181204, end: 20181204
  4. ACETAMINOPHEN [Concomitant]
     Active Substance: ACETAMINOPHEN
     Indication: Premedication
     Dosage: DEFINITION OF THE INTERVAL: AS REQUIRED
     Route: 048
     Dates: start: 20181204, end: 20181204
  5. METHYLPREDNISOLONE [Concomitant]
     Active Substance: METHYLPREDNISOLONE
     Indication: Premedication
     Route: 042
     Dates: start: 20190704, end: 20190704
  6. METHYLPREDNISOLONE [Concomitant]
     Active Substance: METHYLPREDNISOLONE
     Route: 042
     Dates: start: 20181204, end: 20181208
  7. METHYLPREDNISOLONE [Concomitant]
     Active Substance: METHYLPREDNISOLONE
     Route: 042
     Dates: start: 20180918, end: 20180920
  8. PANTOZOL [Concomitant]
     Active Substance: PANTOPRAZOLE SODIUM
     Indication: Prophylaxis
     Dosage: DEFINITION OF THE INTERVAL: AS REQUIRED
     Route: 048
     Dates: start: 2015
  9. DALFAMPRIDINE [Concomitant]
     Active Substance: DALFAMPRIDINE
     Route: 048
     Dates: start: 2015
  10. PREGABALIN [Concomitant]
     Active Substance: PREGABALIN
     Indication: Muscle spasticity
     Route: 048
     Dates: start: 20220210, end: 202303
  11. MAXIM (GERMANY) [Concomitant]
  12. FEXOFENADINE [Concomitant]
     Active Substance: FEXOFENADINE HYDROCHLORIDE
     Route: 048
     Dates: start: 201810, end: 2018
  13. XYLOMETAZOLINE HYDROCHLORIDE [Concomitant]
     Active Substance: XYLOMETAZOLINE HYDROCHLORIDE
     Indication: Influenza like illness
     Dosage: DEFINITION OF THE INTERVAL: AS REQUIRED
     Route: 045
     Dates: start: 202001
  14. SOLIFENACIN [Concomitant]
     Active Substance: SOLIFENACIN
     Indication: Bladder dysfunction
     Route: 048
     Dates: start: 20220215
  15. CITALOPRAM [Concomitant]
     Active Substance: CITALOPRAM\CITALOPRAM HYDROBROMIDE
     Route: 048
     Dates: start: 200712
  16. TROSPIUM CHLORIDE [Concomitant]
     Active Substance: TROSPIUM CHLORIDE
     Indication: Bladder dysfunction
     Route: 048
     Dates: start: 201911
  17. L-CARNITIN [Concomitant]
     Route: 048
     Dates: start: 2018, end: 201811
  18. PREDNISOLONE [Concomitant]
     Active Substance: PREDNISOLONE
     Indication: Premedication
     Dosage: DEFINITION OF THE INTERVAL: AS REQUIRED
     Route: 042
     Dates: start: 20181204
  19. DARIFENACIN [Concomitant]
     Active Substance: DARIFENACIN
     Indication: Urinary incontinence
     Route: 048
     Dates: start: 2018, end: 2019
  20. GABAPENTIN [Concomitant]
     Active Substance: GABAPENTIN
     Indication: Muscle spasticity
     Route: 048
     Dates: start: 20220210, end: 202303
  21. INTERFERON BETA-1A [Concomitant]
     Active Substance: INTERFERON BETA-1A
     Route: 058
     Dates: start: 201508, end: 201711
  22. INTERFERON BETA-1A [Concomitant]
     Active Substance: INTERFERON BETA-1A
     Route: 058
     Dates: start: 2009, end: 2015
  23. CHOLECALCIFEROL [Concomitant]
     Active Substance: CHOLECALCIFEROL
     Indication: Vitamin supplementation
     Route: 048
     Dates: start: 2015
  24. MITOXANTRONE [Concomitant]
     Active Substance: MITOXANTRONE HYDROCHLORIDE
     Dates: start: 200804, end: 200905
  25. DIMETHINDENE MALEATE [Concomitant]
     Active Substance: DIMETHINDENE MALEATE
     Indication: Premedication
     Dosage: DEFINITION OF THE INTERVAL: AS REQUIRED
     Route: 042
     Dates: start: 20190704
  26. IMMUNGLOBULIN [Concomitant]
     Route: 042
     Dates: start: 2004, end: 2005
  27. TERIFLUNOMIDE [Concomitant]
     Active Substance: TERIFLUNOMIDE
     Dates: start: 201711, end: 201808

REACTIONS (1)
  - COVID-19 [Recovered/Resolved]

NARRATIVE: CASE EVENT DATE: 20221001
